FAERS Safety Report 6388586-1 (Version None)
Quarter: 2010Q1

REPORT INFORMATION
  Report Type: 
  Country: None (occurrence: None)
  Receive Date: 20091005
  Receipt Date: 20090924
  Transmission Date: 20100710
  Serious: Yes (Other)
  Sender: FDA-Public Use
  Company Number: US-JNJFOC-20090907870

PATIENT
  Age: 8 Year
  Sex: Male
  Weight: 37.2 kg

DRUGS (5)
  1. CHILDREN'S TYLENOL SUSPENSION [Suspect]
     Route: 048
  2. CHILDREN'S TYLENOL SUSPENSION [Suspect]
     Indication: PYREXIA
     Route: 048
  3. LODRANE [Concomitant]
     Indication: MULTIPLE ALLERGIES
  4. NASONEX [Concomitant]
     Indication: MULTIPLE ALLERGIES
     Dosage: 1 SPRAY TO EACH NOSTRIL DAILY
  5. ALBUTEROL [Concomitant]
     Indication: ASTHMA

REACTIONS (3)
  - SLEEP TERROR [None]
  - SOMNAMBULISM [None]
  - TRANSMISSION OF AN INFECTIOUS AGENT VIA A MEDICINAL PRODUCT [None]
